FAERS Safety Report 6896602-3 (Version None)
Quarter: 2010Q3

REPORT INFORMATION
  Report Type: 
  Country: None (occurrence: None)
  Receive Date: 20100802
  Receipt Date: 20070105
  Transmission Date: 20110219
  Serious: No
  Sender: FDA-Public Use
  Company Number: US-PFIZER INC-2006139646

PATIENT
  Sex: Male
  Weight: 153.77 kg

DRUGS (15)
  1. LYRICA [Suspect]
     Indication: DIABETIC NEUROPATHY
     Dates: start: 20061001
  2. SYNTHROID [Concomitant]
  3. ACTOS [Concomitant]
  4. LIPITOR [Concomitant]
  5. ACCUPRIL [Concomitant]
  6. URECHOLINE [Concomitant]
  7. TAMSULOSIN HYDROCHLORIDE [Concomitant]
  8. MELLARIL [Concomitant]
  9. ATIVAN [Concomitant]
     Indication: ANXIETY DISORDER
  10. LORTAB [Concomitant]
  11. SOMA [Concomitant]
  12. ANDROGEL [Concomitant]
  13. INSULIN [Concomitant]
  14. PROMETHAZINE HCL [Concomitant]
  15. REGLAN [Concomitant]

REACTIONS (6)
  - DIZZINESS [None]
  - DRUG INEFFECTIVE [None]
  - FEELING DRUNK [None]
  - SLEEP DISORDER [None]
  - SOMNOLENCE [None]
  - WEIGHT INCREASED [None]
